FAERS Safety Report 12262481 (Version 1)
Quarter: 2016Q2

REPORT INFORMATION
  Report Type: Report from Study
  Country: US (occurrence: US)
  Receive Date: 20160413
  Receipt Date: 20160413
  Transmission Date: 20160815
  Serious: No
  Sender: FDA-Public Use
  Company Number: US-AMGEN-USASL2016043623

PATIENT
  Age: 49 Year
  Sex: Female

DRUGS (1)
  1. ENBREL [Suspect]
     Active Substance: ETANERCEPT
     Indication: JUVENILE IDIOPATHIC ARTHRITIS
     Dosage: 50 MG, QWK
     Route: 065

REACTIONS (7)
  - Malaise [Unknown]
  - Rash [Not Recovered/Not Resolved]
  - Off label use [Unknown]
  - Inflammatory marker increased [Unknown]
  - Pyrexia [Not Recovered/Not Resolved]
  - Upper respiratory tract infection [Unknown]
  - Drug ineffective for unapproved indication [Unknown]
